FAERS Safety Report 6870114-5 (Version None)
Quarter: 2010Q3

REPORT INFORMATION
  Report Type: 
  Country: None (occurrence: None)
  Receive Date: 20100722
  Receipt Date: 20081029
  Transmission Date: 20110219
  Serious: No
  Sender: FDA-Public Use
  Company Number: US-PFIZER INC-2008077162

PATIENT
  Sex: Female
  Weight: 74.5 kg

DRUGS (5)
  1. CHANTIX [Suspect]
     Indication: SMOKING CESSATION THERAPY
     Dates: start: 20080908
  2. LIPITOR [Concomitant]
  3. ALPRAZOLAM [Concomitant]
     Indication: SLEEP DISORDER
  4. LISINOPRIL [Concomitant]
     Indication: HYPERTENSION
  5. ZOCOR [Concomitant]

REACTIONS (5)
  - ABDOMINAL PAIN [None]
  - CONSTIPATION [None]
  - DECREASED APPETITE [None]
  - HEADACHE [None]
  - HEPATIC PAIN [None]
